FAERS Safety Report 21560972 (Version 1)
Quarter: 2022Q4

REPORT INFORMATION
  Report Type: Spontaneous
  Country: US (occurrence: US)
  Receive Date: 20221107
  Receipt Date: 20221107
  Transmission Date: 20230112
  Serious: Yes (Other)
  Sender: FDA-Public Use
  Company Number: US-INTRA-CELLULAR THERAPIES, INC.-2022ICT01415

PATIENT
  Age: 42 Year
  Sex: Male
  Weight: 130.16 kg

DRUGS (1)
  1. CAPLYTA [Suspect]
     Active Substance: LUMATEPERONE
     Indication: Schizophrenia
     Dosage: 42 MG, 1X/DAY
     Route: 048
     Dates: start: 20220105, end: 202201

REACTIONS (2)
  - Hallucination, auditory [Recovering/Resolving]
  - Alcoholism [Unknown]

NARRATIVE: CASE EVENT DATE: 20220101
